FAERS Safety Report 8408042-6 (Version None)
Quarter: 2012Q2

REPORT INFORMATION
  Report Type: 
  Country: None (occurrence: None)
  Receive Date: 20120601
  Receipt Date: 20120601
  Transmission Date: 20120825
  Serious: Yes (Other)
  Sender: FDA-Public Use
  Company Number: None

PATIENT
  Age: 87 Year
  Sex: Male
  Weight: 87.5442 kg

DRUGS (1)
  1. LEVOFLOXACIN [Suspect]
     Dosage: 750 MG 1/DAY ORAL APRIL 15 TO APRIL 17
     Route: 048

REACTIONS (2)
  - PAIN [None]
  - TENDONITIS [None]
